FAERS Safety Report 7796302-1 (Version None)
Quarter: 2011Q4

REPORT INFORMATION
  Report Type: 
  Country: None (occurrence: None)
  Receive Date: 20111005
  Receipt Date: 20110929
  Transmission Date: 20120403
  Serious: Yes (Other)
  Sender: FDA-Public Use
  Company Number: US-BRISTOL-MYERS SQUIBB COMPANY-15848468

PATIENT
  Age: 73 Year
  Sex: Male

DRUGS (2)
  1. GLIPIZIDE [Suspect]
  2. METFORMIN HCL [Suspect]
     Dosage: FOR NUMBER OF YEARS

REACTIONS (1)
  - RENAL FAILURE [None]
